FAERS Safety Report 11938349 (Version 1)
Quarter: 2016Q1

REPORT INFORMATION
  Report Type: Spontaneous
  Country: US (occurrence: None)
  Receive Date: 20160121
  Receipt Date: 20160121
  Transmission Date: 20160526
  Serious: No
  Sender: FDA-Public Use
  Company Number: None

PATIENT
  Age: 31 Year
  Sex: Female
  Weight: 49.9 kg

DRUGS (2)
  1. PARAGARD T 380A [Suspect]
     Active Substance: COPPER
  2. PARAGARD T 380A [Concomitant]
     Active Substance: COPPER

REACTIONS (4)
  - Metrorrhagia [None]
  - Fungal infection [None]
  - Anaemia [None]
  - Dyspareunia [None]

NARRATIVE: CASE EVENT DATE: 20111123
